FAERS Safety Report 6549224-8 (Version None)
Quarter: 2010Q1

REPORT INFORMATION
  Report Type: 
  Country: None (occurrence: None)
  Receive Date: 20100125
  Receipt Date: 20100118
  Transmission Date: 20100710
  Serious: Yes (Other)
  Sender: FDA-Public Use
  Company Number: US-ROXANE LABORATORIES, INC.-2010-RO-00049RO

PATIENT
  Age: 11 Year
  Sex: Male

DRUGS (2)
  1. METHOTREXATE [Suspect]
     Indication: NON-HODGKIN'S LYMPHOMA
     Route: 037
  2. CHEMOTHERAPY [Suspect]
     Indication: NON-HODGKIN'S LYMPHOMA

REACTIONS (2)
  - NASAL SEPTUM PERFORATION [None]
  - NON-HODGKIN'S LYMPHOMA RECURRENT [None]
